FAERS Safety Report 10254675 (Version 10)
Quarter: 2016Q4

REPORT INFORMATION
  Report Type: Report from Study
  Country: MX (occurrence: MX)
  Receive Date: 20140624
  Receipt Date: 20161103
  Transmission Date: 20170206
  Serious: Yes (Hospitalization, Disabling)
  Sender: FDA-Public Use
  Company Number: MX-ROCHE-1423141

PATIENT
  Age: 45 Year
  Sex: Male
  Weight: 82 kg

DRUGS (6)
  1. CEFUROXIME. [Concomitant]
     Active Substance: CEFUROXIME
  2. ROACTEMRA [Suspect]
     Active Substance: TOCILIZUMAB
     Route: 042
     Dates: start: 201305, end: 201410
  3. ROACTEMRA [Suspect]
     Active Substance: TOCILIZUMAB
     Indication: RHEUMATOID ARTHRITIS
     Route: 042
     Dates: start: 201112, end: 201302
  4. ROACTEMRA [Suspect]
     Active Substance: TOCILIZUMAB
     Route: 042
     Dates: start: 201410, end: 201411
  5. ROACTEMRA [Suspect]
     Active Substance: TOCILIZUMAB
     Dosage: CURRENTLY SUSPENDED
     Route: 042
     Dates: start: 201605, end: 20160913
  6. ROACTEMRA [Suspect]
     Active Substance: TOCILIZUMAB
     Route: 042
     Dates: start: 201412

REACTIONS (20)
  - Chapped lips [Not Recovered/Not Resolved]
  - Lacrimation increased [Recovered/Resolved]
  - Pain in extremity [Recovered/Resolved]
  - Lip haemorrhage [Not Recovered/Not Resolved]
  - Weight increased [Not Recovered/Not Resolved]
  - Arthralgia [Unknown]
  - Musculoskeletal pain [Unknown]
  - Peripheral swelling [Recovering/Resolving]
  - Arthralgia [Recovered/Resolved]
  - Mouth ulceration [Not Recovered/Not Resolved]
  - Joint stiffness [Recovered/Resolved]
  - Musculoskeletal discomfort [Recovered/Resolved]
  - Tooth disorder [Not Recovered/Not Resolved]
  - Nasopharyngitis [Not Recovered/Not Resolved]
  - Drug ineffective [Unknown]
  - Neck pain [Recovered/Resolved]
  - Malaise [Recovering/Resolving]
  - Rhinorrhoea [Recovered/Resolved]
  - Chapped lips [Not Recovered/Not Resolved]
  - Musculoskeletal pain [Recovering/Resolving]

NARRATIVE: CASE EVENT DATE: 201202
